FAERS Safety Report 8383532-3 (Version None)
Quarter: 2012Q2

REPORT INFORMATION
  Report Type: 
  Country: None (occurrence: None)
  Receive Date: 20120524
  Receipt Date: 20120515
  Transmission Date: 20120825
  Serious: Yes (Congenital Anomaly, Other)
  Sender: FDA-Public Use
  Company Number: DE-ASTRAZENECA-2012SE31248

PATIENT
  Sex: Female
  Weight: 3 kg

DRUGS (7)
  1. MELPERON [Concomitant]
     Indication: OBSESSIVE THOUGHTS
     Route: 064
     Dates: start: 20110418, end: 20110517
  2. LEVOTHYROXIN }THYROXIN [Concomitant]
     Indication: HYPOTHYROIDISM
     Route: 064
     Dates: start: 20110418, end: 20111230
  3. SEROQUEL XR [Suspect]
     Indication: OBSESSIVE-COMPULSIVE DISORDER
     Route: 064
     Dates: start: 20110418, end: 20111230
  4. CLOMIPRAMINE HCL [Suspect]
     Indication: DEPRESSION
     Route: 064
     Dates: start: 20110418, end: 20111230
  5. PROPRANOLOL [Concomitant]
     Indication: HYPERTENSION
     Dosage: 20 MG/D / 10 MG IN THE LAST WEEK
     Route: 064
     Dates: start: 20110418, end: 20110526
  6. LYRICA [Concomitant]
     Indication: PAIN
     Dosage: 300 MG/D STEP BY STEP REDUCTION FROM GW 3.1 TO 7.1
     Route: 064
     Dates: start: 20110418, end: 20110607
  7. GYNVITAL [Concomitant]
     Indication: PROPHYLAXIS OF NEURAL TUBE DEFECT
     Route: 064
     Dates: start: 20110525

REACTIONS (5)
  - MYOCLONUS [None]
  - ATRIAL SEPTAL DEFECT [None]
  - FEEDING DISORDER NEONATAL [None]
  - CONVULSION [None]
  - PREMATURE BABY [None]
